FAERS Safety Report 8167067-9 (Version None)
Quarter: 2012Q1

REPORT INFORMATION
  Report Type: 
  Country: None (occurrence: None)
  Receive Date: 20120227
  Receipt Date: 20120222
  Transmission Date: 20120608
  Serious: Yes (Death)
  Sender: FDA-Public Use
  Company Number: DE-JNJFOC-20120210510

PATIENT
  Age: 90 Year
  Sex: Female

DRUGS (11)
  1. RISPERDAL [Suspect]
     Route: 048
     Dates: start: 20101231
  2. RISPERDAL [Suspect]
     Route: 048
     Dates: start: 20101221, end: 20101228
  3. RISPERDAL [Suspect]
     Indication: PRODUCT USED FOR UNKNOWN INDICATION
     Route: 048
     Dates: start: 20101230, end: 20101230
  4. RISPERDAL [Suspect]
     Route: 048
     Dates: start: 20101219, end: 20101220
  5. RISPERDAL [Suspect]
     Route: 048
     Dates: start: 20101229, end: 20101229
  6. K CL TAB [Concomitant]
     Route: 048
     Dates: start: 20101227, end: 20110101
  7. NOVALGIN [Concomitant]
     Route: 048
     Dates: start: 20101227, end: 20110101
  8. NOVALGIN [Concomitant]
     Route: 048
     Dates: start: 20101223, end: 20101226
  9. JONOSTERIL S [Concomitant]
     Route: 042
     Dates: start: 20101221, end: 20110101
  10. K CL TAB [Concomitant]
     Route: 048
     Dates: start: 20101222, end: 20101226
  11. FOLIC ACID [Concomitant]
     Route: 048
     Dates: start: 20101222, end: 20110101

REACTIONS (5)
  - DELUSION [None]
  - DEATH [None]
  - TREATMENT NONCOMPLIANCE [None]
  - SYNCOPE [None]
  - RESTLESSNESS [None]
